FAERS Safety Report 22183828 (Version 1)
Quarter: 2023Q2

REPORT INFORMATION
  Report Type: Spontaneous
  Country: CZ (occurrence: CZ)
  Receive Date: 20230406
  Receipt Date: 20230406
  Transmission Date: 20230721
  Serious: Yes (Life-Threatening, Hospitalization, Other)
  Sender: FDA-Public Use
  Company Number: CZ-CZSUKL-23001013

PATIENT
  Age: 14 Year
  Sex: Female

DRUGS (2)
  1. SERTRALINE [Suspect]
     Active Substance: SERTRALINE HYDROCHLORIDE
     Indication: Product used for unknown indication
     Dosage: TOTAL DOSE 1500 MG
     Route: 065
     Dates: start: 20200914, end: 20200914
  2. ACETAMINOPHEN\CAFFEINE\PROPYPHENAZONE [Suspect]
     Active Substance: ACETAMINOPHEN\CAFFEINE\PROPYPHENAZONE
     Indication: Product used for unknown indication
     Dosage: TOTAL DOSE OF PROPYPHENAZONE 3600 MG PARACETAMOL 1800 MG CAFFEINE 600 MG
     Route: 065
     Dates: start: 20200914, end: 20200914

REACTIONS (2)
  - Suicide attempt [Unknown]
  - Intentional overdose [Unknown]

NARRATIVE: CASE EVENT DATE: 20200914
